FAERS Safety Report 9854818 (Version 4)
Quarter: 2014Q2

REPORT INFORMATION
  Report Type: Report from Study
  Country: JP (occurrence: JP)
  Receive Date: 20140130
  Receipt Date: 20140409
  Transmission Date: 20141212
  Serious: Yes (Hospitalization)
  Sender: FDA-Public Use
  Company Number: JP-ROCHE-1339018

PATIENT
  Age: 42 Year
  Sex: Female
  Weight: 66 kg

DRUGS (3)
  1. TRASTUZUMAB EMTANSINE [Suspect]
     Indication: BREAST CANCER METASTATIC
     Route: 042
     Dates: start: 20140117, end: 20140206
  2. CELECOX [Concomitant]
     Indication: CANCER PAIN
     Route: 048
     Dates: start: 20140110
  3. CALONAL [Concomitant]
     Indication: CANCER PAIN
     Dosage: SINGLE USE
     Route: 048
     Dates: start: 20140110

REACTIONS (1)
  - Lymphangiosis carcinomatosa [Not Recovered/Not Resolved]
